FAERS Safety Report 7256911-5 (Version None)
Quarter: 2011Q1

REPORT INFORMATION
  Report Type: 
  Country: None (occurrence: None)
  Receive Date: 20110129
  Receipt Date: 20100702
  Transmission Date: 20110831
  Serious: No
  Sender: FDA-Public Use
  Company Number: US-ABBOTT-10P-163-0655299-00

PATIENT
  Age: 37 Year
  Sex: Female

DRUGS (8)
  1. ISONIAZID [Concomitant]
     Indication: MYCOBACTERIUM TUBERCULOSIS COMPLEX TEST POSITIVE
     Route: 048
  2. PREDNISONE [Concomitant]
     Indication: PRODUCT USED FOR UNKNOWN INDICATION
     Route: 048
  3. CITALOPRAM [Concomitant]
     Indication: DEPRESSION
     Route: 048
  4. PHENERGAN [Concomitant]
     Indication: NAUSEA
     Dosage: 1 EVERY 6 HOURS AS NEEDED
  5. PREVACID [Concomitant]
     Indication: DYSPEPSIA
     Route: 048
  6. HUMIRA [Suspect]
     Indication: CROHN'S DISEASE
     Dates: start: 20100611
  7. BENADRYL [Concomitant]
     Indication: HYPERSENSITIVITY
     Route: 048
  8. PYRIDOXINE [Concomitant]
     Indication: VITAMIN SUPPLEMENTATION

REACTIONS (2)
  - INJECTION SITE PAIN [None]
  - INJECTION SITE DISCOLOURATION [None]
